FAERS Safety Report 18349917 (Version 1)
Quarter: 2020Q4

REPORT INFORMATION
  Report Type: Spontaneous
  Country: US (occurrence: US)
  Receive Date: 20201006
  Receipt Date: 20201006
  Transmission Date: 20210114
  Serious: Yes (Hospitalization)
  Sender: FDA-Public Use
  Company Number: US-TECHNOMED INC.-2092455

PATIENT
  Age: 38 Year
  Sex: Female

DRUGS (3)
  1. CATAPRES-TTS [Suspect]
     Active Substance: CLONIDINE
     Indication: HYPERTENSION
     Route: 062
  2. CATAPRES-TTS [Suspect]
     Active Substance: CLONIDINE
     Route: 062
  3. CATAPRES-TTS [Suspect]
     Active Substance: CLONIDINE
     Route: 062
     Dates: start: 2004

REACTIONS (3)
  - Foot fracture [Recovering/Resolving]
  - Scar [Not Recovered/Not Resolved]
  - Hypertension [Recovered/Resolved]
